FAERS Safety Report 7112131-6 (Version None)
Quarter: 2010Q4

REPORT INFORMATION
  Report Type: 
  Country: None (occurrence: None)
  Receive Date: 20101119
  Receipt Date: 20091214
  Transmission Date: 20110411
  Serious: No
  Sender: FDA-Public Use
  Company Number: A0832506A

PATIENT
  Age: 72 Year
  Sex: Male

DRUGS (3)
  1. AVODART [Suspect]
     Indication: BENIGN PROSTATIC HYPERPLASIA
     Dosage: .5 PER DAY
     Route: 048
     Dates: start: 20080601
  2. COREG [Concomitant]
  3. MICARDIS [Concomitant]

REACTIONS (1)
  - ADVERSE EVENT [None]
